FAERS Safety Report 5394104-7 (Version None)
Quarter: 2007Q3

REPORT INFORMATION
  Report Type: 
  Country: None (occurrence: None)
  Receive Date: 20070723
  Receipt Date: 20070315
  Transmission Date: 20080115
  Serious: No
  Sender: FDA-Public Use
  Company Number: A0643373A

PATIENT
  Age: 59 Year
  Sex: Female

DRUGS (2)
  1. AVANDIA [Suspect]
     Dosage: 8MG PER DAY
     Route: 048
     Dates: start: 20060901
  2. METFORMIN HCL [Concomitant]

REACTIONS (5)
  - BURSITIS [None]
  - CONTUSION [None]
  - FALL [None]
  - FLUID RETENTION [None]
  - JOINT SWELLING [None]
